FAERS Safety Report 20239886 (Version 1)
Quarter: 2021Q4

REPORT INFORMATION
  Report Type: Spontaneous
  Country: US (occurrence: US)
  Receive Date: 20211228
  Receipt Date: 20211228
  Transmission Date: 20220303
  Serious: Yes (Other)
  Sender: FDA-Public Use
  Company Number: US-PURDUE-USA-2020-0207257

PATIENT
  Sex: Male

DRUGS (1)
  1. OXYCODONE HYDROCHLORIDE [Suspect]
     Active Substance: OXYCODONE HYDROCHLORIDE
     Indication: Spinal operation
     Dosage: 10 MG, QID
     Route: 048

REACTIONS (10)
  - Drug dependence [Unknown]
  - Dysuria [Unknown]
  - Insomnia [Unknown]
  - Constipation [Unknown]
  - Anosmia [Unknown]
  - Ageusia [Unknown]
  - Hypersensitivity [Unknown]
  - Chills [Unknown]
  - Mental disorder [Unknown]
  - Pain [Unknown]
